FAERS Safety Report 21984761 (Version 2)
Quarter: 2023Q1

REPORT INFORMATION
  Report Type: Report from Study
  Country: US (occurrence: US)
  Receive Date: 20230213
  Receipt Date: 20230223
  Transmission Date: 20230418
  Serious: Yes (Other)
  Sender: FDA-Public Use
  Company Number: US-KYOWAKIRIN-2023BKK002050

PATIENT

DRUGS (2)
  1. CRYSVITA [Suspect]
     Active Substance: BUROSUMAB-TWZA
     Indication: Hereditary hypophosphataemic rickets
     Dosage: 51 MG, 1X/2 WEEKS
     Route: 058
     Dates: start: 20180919
  2. CRYSVITA [Suspect]
     Active Substance: BUROSUMAB-TWZA
     Dosage: 51 MG, 1X/2 WEEKS
     Route: 058
     Dates: start: 20230127

REACTIONS (4)
  - Syncope [Recovered/Resolved]
  - Syncope [Recovered/Resolved]
  - Vomiting [Unknown]
  - Incorrect dose administered [Not Recovered/Not Resolved]

NARRATIVE: CASE EVENT DATE: 20180919
